FAERS Safety Report 16000015 (Version 3)
Quarter: 2019Q1

REPORT INFORMATION
  Report Type: Spontaneous
  Country: BE (occurrence: BE)
  Receive Date: 20190225
  Receipt Date: 20190328
  Transmission Date: 20190418
  Serious: Yes (Hospitalization)
  Sender: FDA-Public Use
  Company Number: BE-VERTEX PHARMACEUTICALS-2019-001669

PATIENT
  Sex: Female
  Weight: 57 kg

DRUGS (12)
  1. PULMOZYME [Concomitant]
     Active Substance: DORNASE ALFA
     Indication: CYSTIC FIBROSIS LUNG
     Dosage: 2.5 MG, QD
     Dates: start: 201002
  2. VENTOLIN [Concomitant]
     Active Substance: ALBUTEROL SULFATE
     Indication: CYSTIC FIBROSIS LUNG
     Dosage: 5 DROPS, QD
     Dates: start: 200708
  3. BIOIRON [Concomitant]
     Indication: PANCREATIC FAILURE
     Dosage: 1 DOSAGE FORM
     Dates: start: 201009
  4. SYMBICORT [Concomitant]
     Active Substance: BUDESONIDE\FORMOTEROL FUMARATE DIHYDRATE
     Indication: CYSTIC FIBROSIS LUNG
     Dosage: 4.5-160 UG, BID
     Dates: start: 20180320, end: 20180620
  5. NACL [Concomitant]
     Active Substance: SODIUM CHLORIDE
  6. URSOFALK [Concomitant]
     Active Substance: URSODIOL
     Indication: LIVER DISORDER
     Dosage: 250 MG, BID
     Dates: start: 200410
  7. ORKAMBI [Suspect]
     Active Substance: IVACAFTOR\LUMACAFTOR
     Indication: CYSTIC FIBROSIS
     Dosage: UNK UNK, BID
     Route: 048
     Dates: start: 20180508, end: 20180925
  8. ORGAMETRIL [Concomitant]
     Active Substance: LYNESTRENOL
     Indication: MENSTRUAL DISORDER
     Dosage: 5 MG, QD
     Dates: start: 20180823
  9. CREON [Concomitant]
     Active Substance: PANCRELIPASE AMYLASE\PANCRELIPASE LIPASE\PANCRELIPASE PROTEASE
     Indication: PANCREATIC FAILURE
     Dosage: 300 MG
     Dates: start: 200502
  10. ADEK [Concomitant]
     Indication: PANCREATIC FAILURE
     Dosage: 1000U/800U/100U/LMG
     Dates: start: 200511
  11. HYPERTONIC SALINE SOLUTION [Concomitant]
     Active Substance: SODIUM CHLORIDE
     Indication: CYSTIC FIBROSIS LUNG
     Dosage: 4 MILLILITER, QD
     Dates: start: 200708
  12. FLOXAPEN                           /00239102/ [Concomitant]
     Active Substance: FLUCLOXACILLIN
     Indication: CYSTIC FIBROSIS
     Dosage: 1 GRAM, QID
     Dates: start: 20190212

REACTIONS (4)
  - Hyperventilation [Recovered/Resolved]
  - Vertigo [Recovered/Resolved]
  - Syncope [Recovered/Resolved]
  - Pain in extremity [Recovered/Resolved]

NARRATIVE: CASE EVENT DATE: 2018
